FAERS Safety Report 4855713-4 (Version None)
Quarter: 2005Q4

REPORT INFORMATION
  Report Type: 
  Country: None (occurrence: None)
  Receive Date: 20051214
  Receipt Date: 20051206
  Transmission Date: 20060501
  Serious: Yes (Other)
  Sender: FDA-Public Use
  Company Number: EM2005-0642

PATIENT
  Age: 36 Year
  Sex: Male
  Weight: 76 kg

DRUGS (8)
  1. MACROLIN [Suspect]
     Indication: HIV INFECTION
     Dosage: 4.5 MIU, BID, SUBCUTAN.
     Route: 058
     Dates: start: 20041018, end: 20041022
  2. MACROLIN [Suspect]
     Dosage: 4.5 MIU, BID, SUBCUTAN. ; SEE IMAGE
     Route: 058
     Dates: start: 20041215, end: 20041219
  3. MACROLIN [Suspect]
     Dosage: 4.5 MIU, BID, SUBCUTAN. ; SEE IMAGE
     Route: 058
     Dates: start: 20050209, end: 20050213
  4. MACROLIN [Suspect]
     Dosage: 4.5 MIU, BID, SUBCUTAN. ; SEE IMAGE
     Route: 058
     Dates: start: 20050406, end: 20050410
  5. TENOFOVIR [Concomitant]
  6. EMTRIVA [Concomitant]
  7. NORVIR [Concomitant]
  8. TELZIR [Concomitant]

REACTIONS (2)
  - HODGKIN'S DISEASE [None]
  - LYMPHADENOPATHY [None]
